FAERS Safety Report 21571171 (Version 1)
Quarter: 2022Q4

REPORT INFORMATION
  Report Type: Spontaneous
  Country: US (occurrence: None)
  Receive Date: 20221108
  Receipt Date: 20221108
  Transmission Date: 20230113
  Serious: No
  Sender: FDA-Public Use
  Company Number: None

PATIENT
  Sex: 0

DRUGS (2)
  1. OXYBUTYNIN CHLORIDEEXTENDED RELEASE EXTENDED RELEASE [Suspect]
     Active Substance: OXYBUTYNIN CHLORIDE
  2. TROSPIUM [Suspect]
     Active Substance: TROSPIUM

REACTIONS (3)
  - Constipation [None]
  - Drug ineffective [None]
  - Nausea [None]
